FAERS Safety Report 4845948-9 (Version None)
Quarter: 2005Q4

REPORT INFORMATION
  Report Type: 
  Country: None (occurrence: None)
  Receive Date: 20051201
  Receipt Date: 20051117
  Transmission Date: 20060501
  Serious: Yes (Other)
  Sender: FDA-Public Use
  Company Number: DE200511001459

PATIENT
  Age: 56 Year
  Sex: Female

DRUGS (4)
  1. CYMBALTA [Suspect]
     Indication: DEPRESSION
     Dosage: 60 MG, DAILY (1/D), ORAL
     Route: 048
     Dates: start: 20050301
  2. LAMOTRIGINE [Concomitant]
  3. L-THYROXIN-NATRIUM (LEVOTHYROXINE SODIUM) [Concomitant]
  4. TRAMAL /GFR/ (TRAMADOL HYDROCHLORIDE) [Concomitant]

REACTIONS (3)
  - HYPERTHYROIDISM [None]
  - RENAL DISORDER [None]
  - SYSTEMIC LUPUS ERYTHEMATOSUS [None]
